FAERS Safety Report 20852308 (Version 2)
Quarter: 2022Q2

REPORT INFORMATION
  Report Type: Spontaneous
  Country: US (occurrence: US)
  Receive Date: 20220520
  Receipt Date: 20220606
  Transmission Date: 20220721
  Serious: No
  Sender: FDA-Public Use
  Company Number: US-AMGEN-USASP2022086107

PATIENT
  Sex: Female

DRUGS (10)
  1. OTEZLA [Suspect]
     Active Substance: APREMILAST
     Indication: Psoriasis
     Dosage: 30 MILLIGRAM, BID
     Route: 048
     Dates: start: 20210818, end: 20211209
  2. KETOCONAZOLE [Concomitant]
     Active Substance: KETOCONAZOLE
     Indication: Skin disorder
     Dosage: LATHER ONTO AFFECTED AREAS OF SCALP - LET SIT FOR 10-15 MINS THEN RINSE- USE 2-3X PER WEEK
     Dates: start: 20201027
  3. Flucinonide [Concomitant]
     Indication: Seborrhoeic dermatitis
     Dosage: LATHER INTO AFFECTED AREAS OF SCALP AFTER SHOWEING ONCE DAILY PRN
     Route: 065
     Dates: start: 20190325
  4. CELEXA [Concomitant]
     Active Substance: CITALOPRAM HYDROBROMIDE
     Dosage: UNK
  5. CALCIUM\VITAMIN D [Concomitant]
     Active Substance: CALCIUM\VITAMIN D
     Dosage: UNK
  6. FLINTSTONES [Concomitant]
     Dosage: UNK
  7. ROBAXIN [Concomitant]
     Active Substance: METHOCARBAMOL
     Dosage: PRN
  8. TYLENOL [Concomitant]
     Active Substance: ACETAMINOPHEN
     Dosage: UNK
  9. LEVOTHYROXINE SODIUM [Concomitant]
     Active Substance: LEVOTHYROXINE SODIUM
     Dosage: UNK
  10. OZEMPIC [Concomitant]
     Active Substance: SEMAGLUTIDE
     Dosage: 1 UNK, 1 MG PER DOSE

REACTIONS (2)
  - Psoriasis [Unknown]
  - Product dose omission issue [Unknown]

NARRATIVE: CASE EVENT DATE: 20210101
